FAERS Safety Report 24374293 (Version 2)
Quarter: 2024Q4

REPORT INFORMATION
  Report Type: Spontaneous
  Country: US (occurrence: US)
  Receive Date: 20240927
  Receipt Date: 20241011
  Transmission Date: 20250115
  Serious: No
  Sender: Harrow Health
  Company Number: US-IMP-2024000767

PATIENT
  Age: 60 Year
  Sex: Female

DRUGS (2)
  1. VIGAMOX [Suspect]
     Active Substance: MOXIFLOXACIN HYDROCHLORIDE
     Indication: Eye infection
     Dosage: ONE DROP EACH EYE TWICE A DAY
     Route: 047
     Dates: end: 20240916
  2. OTC Refresh Plus [Concomitant]
     Indication: Product used for unknown indication
     Route: 065

REACTIONS (4)
  - Incorrect product administration duration [Unknown]
  - Off label use [Unknown]
  - Product use issue [Unknown]
  - Product container seal issue [Unknown]

NARRATIVE: CASE EVENT DATE: 20240901
